FAERS Safety Report 7062004-2 (Version None)
Quarter: 2010Q4

REPORT INFORMATION
  Report Type: 
  Country: None (occurrence: None)
  Receive Date: 20101026
  Receipt Date: 20101011
  Transmission Date: 20110411
  Serious: Yes (Other)
  Sender: FDA-Public Use
  Company Number: PHHY2010US67782

PATIENT
  Sex: Male

DRUGS (6)
  1. DIOVAN [Suspect]
     Dosage: 80 MG, DAILY
  2. LOPRESSOR [Concomitant]
     Dosage: 25 MG
  3. PLAVIX [Concomitant]
  4. NORVASC [Concomitant]
     Dosage: 5 MG
  5. POTASSIUM CHLORIDE [Concomitant]
     Dosage: 20 MEQ
  6. ZOCOR [Concomitant]
     Dosage: 40 MG

REACTIONS (9)
  - ACTIVITIES OF DAILY LIVING IMPAIRED [None]
  - BLOOD PRESSURE INCREASED [None]
  - DEAFNESS UNILATERAL [None]
  - DIZZINESS [None]
  - FLUSHING [None]
  - GAIT DISTURBANCE [None]
  - INNER EAR DISORDER [None]
  - NAUSEA [None]
  - VOMITING [None]
